FAERS Safety Report 15979297 (Version 1)
Quarter: 2019Q1

REPORT INFORMATION
  Report Type: Spontaneous
  Country: US (occurrence: US)
  Receive Date: 20190216
  Receipt Date: 20190216
  Transmission Date: 20190418
  Serious: Yes (Hospitalization)
  Sender: FDA-Public Use
  Company Number: None

PATIENT
  Age: 66 Year
  Sex: Male
  Weight: 117 kg

DRUGS (6)
  1. HUMLOGUE [Concomitant]
  2. JARDIANCE [Concomitant]
     Active Substance: EMPAGLIFLOZIN
  3. XARELTO [Suspect]
     Active Substance: RIVAROXABAN
     Indication: ATRIAL FIBRILLATION
     Dosage: ?          QUANTITY:1 TABLET(S);?
     Route: 048
     Dates: start: 20181017, end: 20190205
  4. GLIMPIRIDE [Concomitant]
     Active Substance: GLIMEPIRIDE
  5. CARDIZEM [Concomitant]
     Active Substance: DILTIAZEM HYDROCHLORIDE
  6. LOSORTATION [Concomitant]

REACTIONS (4)
  - Loss of consciousness [None]
  - Facial bones fracture [None]
  - Fall [None]
  - Epistaxis [None]

NARRATIVE: CASE EVENT DATE: 20190205
